FAERS Safety Report 10533553 (Version 3)
Quarter: 2015Q1

REPORT INFORMATION
  Report Type: Spontaneous
  Country: DE (occurrence: DE)
  Receive Date: 20141022
  Receipt Date: 20150129
  Transmission Date: 20150720
  Serious: Yes (Life-Threatening, Hospitalization, Other)
  Sender: FDA-Public Use
  Company Number: DE-BRISTOL-MYERS SQUIBB COMPANY-21502224

PATIENT
  Age: 68 Year
  Sex: Female
  Weight: 100 kg

DRUGS (9)
  1. MIRTAZAPIN [Concomitant]
     Active Substance: MIRTAZAPINE
  2. OMEPRAZOL                          /00661201/ [Concomitant]
     Active Substance: OMEPRAZOLE
  3. ELIQUIS [Suspect]
     Active Substance: APIXABAN
     Indication: CEREBROVASCULAR ACCIDENT PROPHYLAXIS
     Dosage: 5 MG, BID
     Route: 048
     Dates: start: 201406, end: 20140919
  4. ATENOLOL. [Concomitant]
     Active Substance: ATENOLOL
  5. VALSARTAN. [Concomitant]
     Active Substance: VALSARTAN
  6. SIMVASTATIN. [Concomitant]
     Active Substance: SIMVASTATIN
  7. BRISERIN [Concomitant]
  8. MOXONIDIN [Concomitant]
     Active Substance: MOXONIDINE
  9. HCT [Concomitant]
     Active Substance: HYDROCHLOROTHIAZIDE

REACTIONS (5)
  - Intracranial venous sinus thrombosis [Not Recovered/Not Resolved]
  - Cerebral haemorrhage [Not Recovered/Not Resolved]
  - Headache [Unknown]
  - Coagulopathy [Unknown]
  - Confusional state [Unknown]

NARRATIVE: CASE EVENT DATE: 20140920
